FAERS Safety Report 13659196 (Version 2)
Quarter: 2017Q3

REPORT INFORMATION
  Report Type: Spontaneous
  Country: GB (occurrence: GB)
  Receive Date: 20170616
  Receipt Date: 20170805
  Transmission Date: 20171127
  Serious: Yes (Hospitalization, Other)
  Sender: FDA-Public Use
  Company Number: GB-ACCORD-052686

PATIENT
  Age: 37 Year
  Sex: Female

DRUGS (12)
  1. ONDANSETRON [Suspect]
     Active Substance: ONDANSETRON
     Indication: PROPHYLAXIS OF NAUSEA AND VOMITING
     Route: 042
     Dates: start: 20170530, end: 20170530
  2. TRAMADOL. [Interacting]
     Active Substance: TRAMADOL
     Indication: PERIOPERATIVE ANALGESIA
     Route: 042
     Dates: start: 20170530, end: 20170530
  3. ATRACURIUM [Concomitant]
     Active Substance: ATRACURIUM
     Route: 042
  4. PROPOFOL. [Concomitant]
     Active Substance: PROPOFOL
     Route: 042
  5. PARECOXIB/PARECOXIB SODIUM [Concomitant]
     Route: 042
  6. DEXAMETHASONE. [Concomitant]
     Active Substance: DEXAMETHASONE
     Route: 042
  7. GABAPENTIN. [Concomitant]
     Active Substance: GABAPENTIN
  8. REMIFENTANIL/REMIFENTANIL HYDROCHLORIDE [Concomitant]
     Route: 042
  9. TIBOLONE [Concomitant]
     Active Substance: TIBOLONE
  10. MORPHINE [Concomitant]
     Active Substance: MORPHINE
     Route: 042
  11. RESOLOR [Interacting]
     Active Substance: PRUCALOPRIDE SUCCINATE
     Indication: CONSTIPATION
     Route: 048
  12. PARACETAMOL [Concomitant]
     Active Substance: ACETAMINOPHEN

REACTIONS (2)
  - Drug interaction [Unknown]
  - Serotonin syndrome [Recovering/Resolving]

NARRATIVE: CASE EVENT DATE: 20170530
